FAERS Safety Report 8932550 (Version 1)
Quarter: 2012Q4

REPORT INFORMATION
  Report Type: Spontaneous
  Country: ES (occurrence: None)
  Receive Date: 20121120
  Receipt Date: 20121120
  Transmission Date: 20130627
  Serious: Yes (Other)
  Sender: FDA-Public Use
  Company Number: 2012AP003915

PATIENT
  Age: 85 Year
  Sex: Female

DRUGS (2)
  1. IRBESARTAN [Suspect]
     Indication: DRUG USE FOR UNKNOWN INDICATION
  2. ENALAPRIL [Concomitant]

REACTIONS (2)
  - Leukopenia [None]
  - Neutropenia [None]
